APPROVED DRUG PRODUCT: ORBACTIV
Active Ingredient: ORITAVANCIN DIPHOSPHATE
Strength: EQ 400MG BASE/VIAL
Dosage Form/Route: POWDER;INTRAVENOUS
Application: N206334 | Product #001
Applicant: MELINTA THERAPEUTICS LLC
Approved: Aug 6, 2014 | RLD: Yes | RS: Yes | Type: RX

PATENTS:
Patent 8420592 | Expires: Aug 29, 2029
Patent 12514899 | Expires: Aug 29, 2029
Patent 9682061 | Expires: Apr 26, 2030
Patent 9649352 | Expires: Jul 16, 2035